FAERS Safety Report 21344569 (Version 1)
Quarter: 2022Q3

REPORT INFORMATION
  Report Type: Spontaneous
  Country: US (occurrence: US)
  Receive Date: 20220916
  Receipt Date: 20220916
  Transmission Date: 20221027
  Serious: No
  Sender: FDA-Public Use
  Company Number: US-NOVEN PHARMACEUTICALS, INC.-2022-NOV-US000152

PATIENT
  Sex: Female

DRUGS (1)
  1. COMBIPATCH [Suspect]
     Active Substance: ESTRADIOL\NORETHINDRONE ACETATE
     Indication: Menopause
     Dosage: 0.05/0.14MG, EVERY 3-4 DAYS
     Route: 062
     Dates: start: 2021

REACTIONS (9)
  - Skin injury [Not Recovered/Not Resolved]
  - Application site swelling [Not Recovered/Not Resolved]
  - Application site pain [Not Recovered/Not Resolved]
  - Application site erythema [Not Recovered/Not Resolved]
  - Application site pruritus [Not Recovered/Not Resolved]
  - Application site irritation [Not Recovered/Not Resolved]
  - Product residue present [Not Recovered/Not Resolved]
  - Device difficult to use [Not Recovered/Not Resolved]
  - Product storage error [Not Recovered/Not Resolved]

NARRATIVE: CASE EVENT DATE: 20220101
